FAERS Safety Report 9309920 (Version 1)
Quarter: 2013Q2

REPORT INFORMATION
  Report Type: Spontaneous
  Country: US (occurrence: US)
  Receive Date: 20130527
  Receipt Date: 20130527
  Transmission Date: 20140414
  Serious: No
  Sender: FDA-Public Use
  Company Number: US-009507513-1305USA010407

PATIENT
  Age: 86 Year
  Sex: Male

DRUGS (4)
  1. AZASITE [Suspect]
     Indication: EYE INFECTION
     Dosage: ONE DROP IN EACH EYE EVERY OTHER NIGHT
     Route: 047
     Dates: start: 201105, end: 20130513
  2. DIOVAN [Concomitant]
  3. AMLODIPINE [Concomitant]
  4. HYDROCHLOROTHIAZIDE [Concomitant]

REACTIONS (3)
  - Eye burns [Recovering/Resolving]
  - Vision blurred [Recovering/Resolving]
  - Product quality issue [Unknown]
